FAERS Safety Report 15712258 (Version 6)
Quarter: 2019Q3

REPORT INFORMATION
  Report Type: Spontaneous
  Country: US (occurrence: US)
  Receive Date: 20181212
  Receipt Date: 20190910
  Transmission Date: 20191004
  Serious: Yes (Hospitalization)
  Sender: FDA-Public Use
  Company Number: US-PFIZER INC-2018510937

PATIENT
  Age: 67 Year
  Sex: Female

DRUGS (7)
  1. GENOTROPIN MQ [Suspect]
     Active Substance: SOMATROPIN
     Indication: ADRENAL INSUFFICIENCY
  2. DEXAMETHASONE. [Concomitant]
     Active Substance: DEXAMETHASONE
     Indication: ADRENAL INSUFFICIENCY
     Dosage: 2.5 MG, DAILY, ((1/2 TAB) DAILY)
     Dates: start: 1990
  3. GENOTROPIN MQ [Suspect]
     Active Substance: SOMATROPIN
     Indication: HYPOPITUITARISM
     Dosage: 0.8 MG, DAILY
     Dates: start: 2017, end: 201902
  4. FEROSUL [Concomitant]
     Indication: IRON DEFICIENCY
     Dosage: 325 MG, 2X/DAY
     Dates: start: 2017
  5. SYNTHROID [Concomitant]
     Active Substance: LEVOTHYROXINE SODIUM
     Indication: HYPOTHYROIDISM
     Dosage: 150 MG, DAILY
     Dates: start: 2010
  6. GENOTROPIN MQ [Suspect]
     Active Substance: SOMATROPIN
     Indication: HORMONE LEVEL ABNORMAL
  7. PROXETINE [Concomitant]
     Indication: DEPRESSION
     Dosage: 30 MG, DAILY
     Dates: start: 2017

REACTIONS (3)
  - Sinusitis [Recovered/Resolved]
  - Hepatic enzyme increased [Unknown]
  - Hepatic steatosis [Unknown]
